FAERS Safety Report 8055764-5 (Version None)
Quarter: 2011Q4

REPORT INFORMATION
  Report Type: 
  Country: None (occurrence: None)
  Receive Date: 20111215
  Receipt Date: 20110308
  Transmission Date: 20120403
  Serious: Yes (Other)
  Sender: FDA-Public Use
  Company Number: 1000019176

PATIENT
  Age: 77 Year
  Sex: Female

DRUGS (16)
  1. TRAMADOL HCL [Concomitant]
  2. MIACALCIN (CALCITONIN, SALMON) (CALCITONIN, SALMON) [Concomitant]
  3. LEVOTHYROXINE (LEVOTHYROXINE SODIUM) (LEVOTHYROXINE SODIUM) [Concomitant]
  4. TRICOR [Concomitant]
  5. SIMVASTATIN [Concomitant]
  6. PLAVIX [Concomitant]
  7. VITAMIN D (VITAMIN D) (VITAMIN D) [Concomitant]
  8. TYLENOL ARTHRITIS (ACETAMINOPHEN) (ACETAMINOPHEN) [Concomitant]
  9. ARICEPT [Suspect]
     Indication: DEMENTIA
  10. ASPIRIN (ACETYLSALICYLIC ACID) (ACETYLSALICYCLIC ACID) [Concomitant]
  11. MULTIVITAMIN (MULTIVITAMIN) (MULTIVITAMIN) [Concomitant]
  12. NAMENDA [Suspect]
     Indication: DEMENTIA
     Dosage: 20 MG (10 MG,2 IN 1 D),ORAL
     Route: 048
  13. ZANTAC (RANITIDINE) (RANITIDINE) [Concomitant]
  14. REMERON [Concomitant]
  15. AMLODIPINE [Concomitant]
  16. ACTONEL (RISEDRONATE SODIUM) (RISEDRONATE SODIUM) [Concomitant]

REACTIONS (1)
  - ELECTROCARDIOGRAM QT PROLONGED [None]
